FAERS Safety Report 10297529 (Version 2)
Quarter: 2014Q3

REPORT INFORMATION
  Report Type: Spontaneous
  Country: NO (occurrence: NO)
  Receive Date: 20140711
  Receipt Date: 20140716
  Transmission Date: 20150326
  Serious: Yes (Other)
  Sender: FDA-Public Use
  Company Number: NO-SA-2014SA088678

PATIENT
  Age: 36 Year
  Sex: Female

DRUGS (6)
  1. VENTOLINE [Concomitant]
     Active Substance: ALBUTEROL
  2. AUBAGIO [Suspect]
     Active Substance: TERIFLUNOMIDE
     Indication: RELAPSING-REMITTING MULTIPLE SCLEROSIS
     Route: 048
     Dates: start: 201403, end: 20140610
  3. NALTREXONE [Concomitant]
     Active Substance: NALTREXONE
  4. PARACET [Concomitant]
     Active Substance: ACETAMINOPHEN
  5. PREDNISOLONE. [Concomitant]
     Active Substance: PREDNISOLONE
  6. QUESTRAN [Concomitant]
     Active Substance: CHOLESTYRAMINE

REACTIONS (1)
  - Dyspnoea [Recovered/Resolved]
